FAERS Safety Report 8228557-3 (Version None)
Quarter: 2012Q1

REPORT INFORMATION
  Report Type: 
  Country: None (occurrence: None)
  Receive Date: 20120322
  Receipt Date: 20110414
  Transmission Date: 20120608
  Serious: Yes (Other)
  Sender: FDA-Public Use
  Company Number: US-BRISTOL-MYERS SQUIBB COMPANY-15676711

PATIENT
  Age: 57 Year
  Sex: Male

DRUGS (5)
  1. BENADRYL [Concomitant]
  2. ERBITUX [Suspect]
     Indication: COLORECTAL CANCER METASTATIC
     Dosage: 1 DF = APPROX 13CC
     Dates: start: 20110404
  3. FLUOROURACIL [Concomitant]
     Indication: COLORECTAL CANCER METASTATIC
     Dates: start: 20110411
  4. IRINOTECAN HCL [Concomitant]
     Indication: COLORECTAL CANCER METASTATIC
     Dates: start: 20110411
  5. LEUCOVORIN CALCIUM [Concomitant]
     Indication: COLORECTAL CANCER METASTATIC
     Dates: start: 20110411

REACTIONS (2)
  - ERYTHEMA [None]
  - BRONCHOSPASM [None]
